FAERS Safety Report 7654319-1 (Version None)
Quarter: 2011Q3

REPORT INFORMATION
  Report Type: 
  Country: None (occurrence: None)
  Receive Date: 20110803
  Receipt Date: 20110727
  Transmission Date: 20111222
  Serious: Yes (Other)
  Sender: FDA-Public Use
  Company Number: US-SANOFI-AVENTIS-2011SA000046

PATIENT
  Age: 64 Year
  Sex: Female

DRUGS (6)
  1. LANTUS [Suspect]
     Indication: TYPE 2 DIABETES MELLITUS
     Dosage: DOSE:10 UNIT(S)
     Route: 058
     Dates: start: 20100901
  2. LANTUS [Suspect]
     Dosage: DOSE:10 UNIT(S)
     Route: 058
     Dates: start: 20100901
  3. SOLOSTAR [Suspect]
     Indication: TYPE 2 DIABETES MELLITUS
     Dates: start: 20100901
  4. LANTUS [Suspect]
     Dosage: DOSE:10 UNIT(S)
     Route: 058
     Dates: start: 20100901
  5. SOLOSTAR [Suspect]
     Dates: start: 20100901
  6. SOLOSTAR [Suspect]
     Dates: start: 20100901

REACTIONS (7)
  - ECONOMIC PROBLEM [None]
  - GAIT DISTURBANCE [None]
  - NAIL DISORDER [None]
  - RENAL FAILURE [None]
  - RETINAL DISORDER [None]
  - CHEST PAIN [None]
  - STRESS [None]
